FAERS Safety Report 7087825-1 (Version None)
Quarter: 2010Q4

REPORT INFORMATION
  Report Type: 
  Country: None (occurrence: None)
  Receive Date: 20101108
  Receipt Date: 20101027
  Transmission Date: 20110411
  Serious: Yes (Other)
  Sender: FDA-Public Use
  Company Number: US-JNJFOC-20101100408

PATIENT
  Sex: Female
  Weight: 48.54 kg

DRUGS (1)
  1. LEVAQUIN [Suspect]
     Indication: VIRAL INFECTION
     Route: 048

REACTIONS (4)
  - ARTHRALGIA [None]
  - CARPAL TUNNEL SYNDROME [None]
  - PAIN [None]
  - PAIN IN EXTREMITY [None]
